FAERS Safety Report 6551946-X (Version None)
Quarter: 2009Q4

REPORT INFORMATION
  Report Type: 
  Country: None (occurrence: None)
  Receive Date: 20091215
  Receipt Date: 20090115
  Transmission Date: 20100525
  Serious: Yes (Other)
  Sender: FDA-Public Use
  Company Number: FEI2009-0079

PATIENT
  Age: 31 Year
  Sex: Female
  Weight: 72.1219 kg

DRUGS (2)
  1. PARAGARD T 380A [Suspect]
     Indication: CONTRACEPTION
     Dosage: INTRA-UTERINE
     Route: 015
     Dates: start: 20090113, end: 20090114
  2. PRENATAL VITAMINS (ASCORBIC ACID, BIOTIN, TOCOPHEROL, NICOTINIC ACID, [Concomitant]

REACTIONS (2)
  - DIZZINESS [None]
  - SYNCOPE [None]
